FAERS Safety Report 7024294-1 (Version None)
Quarter: 2010Q4

REPORT INFORMATION
  Report Type: 
  Country: None (occurrence: None)
  Receive Date: 20101001
  Receipt Date: 20100923
  Transmission Date: 20110411
  Serious: Yes (Other)
  Sender: FDA-Public Use
  Company Number: DE-B.I. PHARMACEUTICALS,INC./RIDGEFIELD-2010-DE-05082DE

PATIENT
  Sex: Female

DRUGS (5)
  1. VIRAMUNE [Suspect]
     Indication: HIV INFECTION
     Dosage: 200 MG
     Route: 048
     Dates: start: 19980416, end: 20030407
  2. VIRAMUNE [Suspect]
     Dates: start: 20030407
  3. ZERIT [Concomitant]
     Indication: HIV INFECTION
     Dosage: 60 MG
     Route: 048
     Dates: start: 19980416, end: 20030407
  4. EPIVIR [Concomitant]
     Indication: HIV INFECTION
     Dosage: 300 MG
     Route: 048
     Dates: start: 19980416, end: 20030407
  5. TRUVADA [Concomitant]
     Indication: HIV INFECTION
     Dates: start: 20080919

REACTIONS (1)
  - ABORTION [None]
